FAERS Safety Report 8105393-X (Version None)
Quarter: 2012Q1

REPORT INFORMATION
  Report Type: 
  Country: None (occurrence: None)
  Receive Date: 20120201
  Receipt Date: 20120127
  Transmission Date: 20120608
  Serious: Yes (Other)
  Sender: FDA-Public Use
  Company Number: US-BAYER-2012-009338

PATIENT
  Age: 70 Year
  Sex: Female
  Weight: 61 kg

DRUGS (7)
  1. ASPIRIN [Suspect]
     Indication: ISCHAEMIC HEART DISEASE PROPHYLAXIS
     Dosage: 1 DF, QD
     Route: 048
     Dates: start: 20120101, end: 20120119
  2. VITAMIN B12 NOS [Concomitant]
  3. MULTI-VITAMINS [Concomitant]
  4. ANTIDEPRESSANTS [Concomitant]
  5. VITAMIN D [Concomitant]
  6. CITRACAL [Concomitant]
     Dosage: 1 DF, QD
     Route: 048
  7. ZOCOR [Concomitant]

REACTIONS (2)
  - FEELING HOT [None]
  - EPISTAXIS [None]
